FAERS Safety Report 9069111 (Version 1)
Quarter: 2013Q1

REPORT INFORMATION
  Report Type: Spontaneous
  Country: PT (occurrence: None)
  Receive Date: 20130122
  Receipt Date: 20130122
  Transmission Date: 20140127
  Serious: Yes (Other)
  Sender: FDA-Public Use
  Company Number: 1554575

PATIENT
  Age: 71 Year
  Sex: Female
  Weight: 85 kg

DRUGS (4)
  1. MEROPENEM [Suspect]
     Indication: PNEUMONIA
     Dosage: 1 G GRAM (S), 1 HOUR, INTRAVENOUS (NOT OTHERWISE SPECIFIED)
     Route: 042
     Dates: start: 20121217, end: 20121220
  2. ENOXAPARIN SODIUM [Suspect]
     Indication: THROMBOSIS PROPHYLAXIS
     Route: 058
     Dates: start: 20121211, end: 20121221
  3. AZITHROMYCIN [Concomitant]
  4. CEFTRIAXONE [Concomitant]

REACTIONS (2)
  - Purpura non-thrombocytopenic [None]
  - Drug interaction [None]
